FAERS Safety Report 7668789-6 (Version None)
Quarter: 2011Q3

REPORT INFORMATION
  Report Type: 
  Country: None (occurrence: None)
  Receive Date: 20110808
  Receipt Date: 20110729
  Transmission Date: 20111222
  Serious: Yes (Disabling, Other)
  Sender: FDA-Public Use
  Company Number: FR-ASTELLAS-2011US003715

PATIENT
  Age: 56 Year
  Sex: Male

DRUGS (2)
  1. TARCEVA [Suspect]
     Indication: LUNG ADENOCARCINOMA METASTATIC
     Dosage: 100 MG, UID/QD
     Route: 048
     Dates: start: 20080601
  2. TARCEVA [Suspect]
     Dosage: 75 MG, UID/QD
     Route: 048

REACTIONS (2)
  - FASCIITIS [None]
  - DERMATITIS ACNEIFORM [None]
